FAERS Safety Report 24902201 (Version 2)
Quarter: 2025Q1

REPORT INFORMATION
  Report Type: Spontaneous
  Country: US (occurrence: US)
  Receive Date: 20250129
  Receipt Date: 20250301
  Transmission Date: 20250409
  Serious: No
  Sender: SANOFI AVENTIS
  Company Number: US-SA-2025SA027489

PATIENT
  Sex: Female
  Weight: 75.91 kg

DRUGS (11)
  1. DUPIXENT [Suspect]
     Active Substance: DUPILUMAB
     Indication: Nasal polyps
     Dosage: 300 MG, QOW
     Route: 058
  2. DUPIXENT [Suspect]
     Active Substance: DUPILUMAB
     Indication: Asthma
  3. AMOXICILLIN [Concomitant]
     Active Substance: AMOXICILLIN
  4. EPINEPHRINE [Concomitant]
     Active Substance: EPINEPHRINE
  5. BREO ELLIPTA [Concomitant]
     Active Substance: FLUTICASONE FUROATE\VILANTEROL TRIFENATATE
  6. ESZOPICLONE [Concomitant]
     Active Substance: ESZOPICLONE
  7. HYDROCORTISONE [Concomitant]
     Active Substance: HYDROCORTISONE
  8. METHYLPREDNISOLONE [Concomitant]
     Active Substance: METHYLPREDNISOLONE
  9. PANTOPRAZOLE SODIUM [Concomitant]
     Active Substance: PANTOPRAZOLE SODIUM
  10. TRAMADOL [Concomitant]
     Active Substance: TRAMADOL
  11. CITALOPRAM [Concomitant]
     Active Substance: CITALOPRAM

REACTIONS (1)
  - Hypersensitivity [Unknown]
